FAERS Safety Report 16109108 (Version 1)
Quarter: 2019Q1

REPORT INFORMATION
  Report Type: Spontaneous
  Country: US (occurrence: US)
  Receive Date: 20190323
  Receipt Date: 20190323
  Transmission Date: 20190418
  Serious: No
  Sender: FDA-Public Use
  Company Number: US-THERAPEUTICSMD-2019TMD00141

PATIENT
  Age: 69 Year
  Sex: Female
  Weight: 117.91 kg

DRUGS (13)
  1. IMVEXXY [Suspect]
     Active Substance: ESTRADIOL
     Indication: VULVOVAGINAL DRYNESS
     Dosage: 4 ?G, 2X/WEEK BEFORE BEDTIME
     Route: 067
     Dates: start: 201902, end: 20190210
  2. CALCIUM [Concomitant]
     Active Substance: CALCIUM
  3. HYDROCHLOROTHIAZIDE. [Concomitant]
     Active Substance: HYDROCHLOROTHIAZIDE
  4. FISH OIL [Concomitant]
     Active Substance: FISH OIL
  5. CYMBALTA [Concomitant]
     Active Substance: DULOXETINE HYDROCHLORIDE
  6. ALLEGRA [Concomitant]
     Active Substance: FEXOFENADINE HYDROCHLORIDE
  7. DICLOFENAC [Concomitant]
     Active Substance: DICLOFENAC
  8. SYNTHROID [Concomitant]
     Active Substance: LEVOTHYROXINE SODIUM
  9. MAGNESIUM [Concomitant]
     Active Substance: MAGNESIUM
  10. PROTONIX [Concomitant]
     Active Substance: PANTOPRAZOLE SODIUM
  11. GABAPENTIN. [Concomitant]
     Active Substance: GABAPENTIN
  12. UNSPECIFIED VITAMIN FOR EYES [Concomitant]
  13. MYRBETRIQ [Concomitant]
     Active Substance: MIRABEGRON

REACTIONS (5)
  - Vulvovaginal mycotic infection [Not Recovered/Not Resolved]
  - Fungal skin infection [Not Recovered/Not Resolved]
  - Off label use [Recovered/Resolved]
  - Drug hypersensitivity [Not Recovered/Not Resolved]
  - Rash pruritic [Not Recovered/Not Resolved]

NARRATIVE: CASE EVENT DATE: 201902
